FAERS Safety Report 5725655-0 (Version None)
Quarter: 2008Q2

REPORT INFORMATION
  Report Type: 
  Country: None (occurrence: None)
  Receive Date: 20080501
  Receipt Date: 20080421
  Transmission Date: 20081010
  Serious: Yes (Other)
  Sender: FDA-Public Use
  Company Number: US-ELI_LILLY_AND_COMPANY-US200803000633

PATIENT
  Sex: Female

DRUGS (2)
  1. FORTEO [Suspect]
     Dosage: UNK, UNK
     Dates: start: 20061001
  2. DARVOCET [Concomitant]

REACTIONS (4)
  - BACK PAIN [None]
  - BREAST CANCER [None]
  - PAIN IN EXTREMITY [None]
  - WHITE BLOOD CELL COUNT DECREASED [None]
